FAERS Safety Report 5003469-7 (Version None)
Quarter: 2006Q2

REPORT INFORMATION
  Report Type: 
  Country: None (occurrence: None)
  Receive Date: 20060516
  Receipt Date: 20060428
  Transmission Date: 20061013
  Serious: Yes (Other)
  Sender: FDA-Public Use
  Company Number: US-ABBOTT-06P-163-0332161-00

PATIENT
  Age: 5 Year
  Sex: Female
  Weight: 22 kg

DRUGS (3)
  1. ULTANE LIQUID FOR INHALATION, 250ML PEN BOTTLE [Suspect]
     Indication: ANAESTHESIA
     Dates: start: 20060401, end: 20060401
  2. MIDAZOLAM HYDROCHLORIDE [Concomitant]
     Indication: SEDATION
     Route: 042
     Dates: start: 20060401, end: 20060401
  3. FENTANYL [Concomitant]
     Indication: SEDATION
     Route: 042
     Dates: start: 20060401, end: 20060401

REACTIONS (4)
  - APNOEA [None]
  - DELAYED RECOVERY FROM ANAESTHESIA [None]
  - DRUG EFFECT PROLONGED [None]
  - SOMNOLENCE [None]
